FAERS Safety Report 5402839-2 (Version None)
Quarter: 2007Q3

REPORT INFORMATION
  Report Type: 
  Country: None (occurrence: None)
  Receive Date: 20070730
  Receipt Date: 20070723
  Transmission Date: 20080115
  Serious: Yes (Hospitalization)
  Sender: FDA-Public Use
  Company Number: 920#8#2007-00005

PATIENT
  Age: 74 Year
  Sex: Male

DRUGS (7)
  1. NIFEDIPINE [Suspect]
     Indication: HYPERTENSION
     Dosage: 30 MG, 2 IN 1 D
  2. RITONAVIR [Suspect]
     Dates: start: 20020101
  3. LOPINAVIR [Concomitant]
  4. DOXAZOSIN MESYLATE [Concomitant]
  5. FUROSEMIDE [Concomitant]
  6. STAVUDINE [Concomitant]
  7. LAMIVUDINE [Concomitant]

REACTIONS (4)
  - ACUTE PRERENAL FAILURE [None]
  - DRUG INTERACTION [None]
  - HYPOTENSION [None]
  - RENAL FAILURE ACUTE [None]
